FAERS Safety Report 11683478 (Version 1)
Quarter: 2015Q4

REPORT INFORMATION
  Report Type: Spontaneous
  Country: US (occurrence: US)
  Receive Date: 20151029
  Receipt Date: 20151029
  Transmission Date: 20160304
  Serious: Yes (Other)
  Sender: FDA-Public Use
  Company Number: US-AMGEN-USASP2015113128

PATIENT
  Age: 74 Year
  Sex: Female

DRUGS (1)
  1. ENBREL [Suspect]
     Active Substance: ETANERCEPT
     Indication: PSORIASIS
     Dosage: 50 MG, 2 TIMES/WK
     Route: 065
     Dates: start: 2012

REACTIONS (5)
  - Arthropathy [Unknown]
  - Meniscus injury [Unknown]
  - Inappropriate schedule of drug administration [Not Recovered/Not Resolved]
  - Joint injury [Unknown]
  - Accident [Recovered/Resolved]

NARRATIVE: CASE EVENT DATE: 2015
